FAERS Safety Report 18649233 (Version 3)
Quarter: 2021Q1

REPORT INFORMATION
  Report Type: Spontaneous
  Country: SE (occurrence: SE)
  Receive Date: 20201222
  Receipt Date: 20210112
  Transmission Date: 20210419
  Serious: Yes (Other)
  Sender: FDA-Public Use
  Company Number: SE-REGENERON PHARMACEUTICALS, INC.-2020-95879

PATIENT

DRUGS (1)
  1. EYLEA [Suspect]
     Active Substance: AFLIBERCEPT
     Indication: AGE-RELATED MACULAR DEGENERATION
     Dosage: 0.05 ML, ONCE
     Route: 031
     Dates: start: 20201215, end: 20201215

REACTIONS (3)
  - Device use issue [Unknown]
  - Intraocular pressure increased [Recovered/Resolved]
  - Blindness [Unknown]

NARRATIVE: CASE EVENT DATE: 20201215
